FAERS Safety Report 24926947 (Version 2)
Quarter: 2025Q1

REPORT INFORMATION
  Report Type: Spontaneous
  Country: US (occurrence: US)
  Receive Date: 20250205
  Receipt Date: 20250207
  Transmission Date: 20250408
  Serious: Yes (Death, Hospitalization, Other)
  Sender: SANDOZ
  Company Number: US-SANDOZ-SDZ2025US006560

PATIENT
  Age: 68 Year
  Sex: Male
  Weight: 45 kg

DRUGS (5)
  1. AZITHROMYCIN [Suspect]
     Active Substance: AZITHROMYCIN
     Indication: Chronic obstructive pulmonary disease
     Route: 065
  2. AZITHROMYCIN [Suspect]
     Active Substance: AZITHROMYCIN
     Indication: Pneumonia
  3. CLOFAZIMINE [Suspect]
     Active Substance: CLOFAZIMINE
     Indication: Pneumonia
     Route: 065
     Dates: start: 20241028, end: 20250128
  4. ETHAMBUTOL [Suspect]
     Active Substance: ETHAMBUTOL HYDROCHLORIDE
     Indication: Product used for unknown indication
     Route: 065
  5. RIFAMPIN [Suspect]
     Active Substance: RIFAMPIN
     Indication: Product used for unknown indication
     Route: 065

REACTIONS (2)
  - Pneumothorax [Fatal]
  - Therapeutic product effect incomplete [Fatal]

NARRATIVE: CASE EVENT DATE: 20250126
